FAERS Safety Report 20536038 (Version 3)
Quarter: 2022Q2

REPORT INFORMATION
  Report Type: Report from Study
  Country: CO (occurrence: CO)
  Receive Date: 20220302
  Receipt Date: 20220421
  Transmission Date: 20220721
  Serious: Yes (Hospitalization, Other)
  Sender: FDA-Public Use
  Company Number: CO-BRISTOL-MYERS SQUIBB COMPANY-BMS-2022-029638

PATIENT
  Age: 60 Year
  Sex: Male
  Weight: 60 kg

DRUGS (2)
  1. NIVOLUMAB [Suspect]
     Active Substance: NIVOLUMAB
     Indication: Renal cancer
     Dosage: 240 MG, EACH 15 DAYS
     Route: 042
     Dates: start: 20220128
  2. YERVOY [Suspect]
     Active Substance: IPILIMUMAB
     Indication: Renal cancer
     Dosage: 50 MILLIGRAM, Q3WK
     Route: 042
     Dates: start: 20220128

REACTIONS (6)
  - Hypoxia [Unknown]
  - Pleural effusion [Unknown]
  - Urinary retention [Recovered/Resolved]
  - Seizure [Unknown]
  - Catheter site infection [Unknown]
  - Intentional product use issue [Unknown]

NARRATIVE: CASE EVENT DATE: 20220209
